FAERS Safety Report 13802030 (Version 3)
Quarter: 2017Q3

REPORT INFORMATION
  Report Type: Spontaneous
  Country: DE (occurrence: DE)
  Receive Date: 20170727
  Receipt Date: 20170825
  Transmission Date: 20171127
  Serious: Yes (Life-Threatening, Hospitalization)
  Sender: FDA-Public Use
  Company Number: DE-MYLANLABS-2017M1043645

PATIENT

DRUGS (5)
  1. PILOMANN [Concomitant]
     Indication: GLAUCOMA
     Dosage: 1 GTT, QD IN THE EVENING
     Dates: start: 201603
  2. ALOC 300 [Concomitant]
     Indication: GOUT
     Dosage: 1 DF, QD IN THE MORNING
     Dates: start: 201609
  3. GANFORT [Interacting]
     Active Substance: BIMATOPROST\TIMOLOL
     Indication: GLAUCOMA
     Dosage: 1 DROP BILATERAL ONCE EARLY DAILY
     Dates: start: 201309
  4. TRUSOPT [Concomitant]
     Active Substance: DORZOLAMIDE HYDROCHLORIDE
     Indication: GLAUCOMA
     Dosage: 1 GTT, QD, 7AM, 3PM, 11PM.
     Dates: start: 201703
  5. FASTJEKT [Suspect]
     Active Substance: EPINEPHRINE
     Indication: ANAPHYLACTIC SHOCK
     Dosage: UNK
     Route: 030
     Dates: start: 20170705

REACTIONS (2)
  - Drug effect incomplete [Recovered/Resolved]
  - Anaphylactic shock [Recovered/Resolved]
